FAERS Safety Report 10263409 (Version 1)
Quarter: 2014Q2

REPORT INFORMATION
  Report Type: Spontaneous
  Country: GB (occurrence: GB)
  Receive Date: 20140626
  Receipt Date: 20140626
  Transmission Date: 20141212
  Serious: Yes (Other)
  Sender: FDA-Public Use
  Company Number: GB-ALLERGAN-1413961US

PATIENT
  Age: 47 Year
  Sex: Female
  Weight: 88 kg

DRUGS (3)
  1. BRIMONIDINE UNK [Suspect]
     Indication: PRODUCT USED FOR UNKNOWN INDICATION
     Dosage: UNK
     Dates: start: 20140612
  2. CODEINE PHOSPHATE [Concomitant]
     Dosage: UNK
     Dates: start: 20140410, end: 20140416
  3. METRONIDAZOLE [Concomitant]
     Dosage: UNK
     Dates: start: 20140410, end: 20140417

REACTIONS (1)
  - Flushing [Recovering/Resolving]
